FAERS Safety Report 14197152 (Version 10)
Quarter: 2018Q4

REPORT INFORMATION
  Report Type: Spontaneous
  Country: US (occurrence: US)
  Receive Date: 20171116
  Receipt Date: 20181002
  Transmission Date: 20190204
  Serious: Yes (Death, Hospitalization)
  Sender: FDA-Public Use
  Company Number: US-ACTELION-A-US2017-162518

PATIENT
  Age: 55 Year
  Sex: Male
  Weight: 54.42 kg

DRUGS (26)
  1. ELIQUIS [Concomitant]
     Active Substance: APIXABAN
  2. ZOFRAN [Concomitant]
     Active Substance: ONDANSETRON HYDROCHLORIDE
     Indication: VOMITING
  3. PANTOPRAZOLE [Concomitant]
     Active Substance: PANTOPRAZOLE
     Dosage: 40 MG, BID, BEFORE BREAKFAST AND BEFORE DINNER
     Route: 048
  4. ZOFRAN [Concomitant]
     Active Substance: ONDANSETRON HYDROCHLORIDE
     Indication: NAUSEA
     Dosage: 4 MG, Q4 PRN
     Route: 048
  5. OXYCODONE [Concomitant]
     Active Substance: OXYCODONE
     Indication: PAIN
     Dosage: 30 MG, Q12H
     Route: 048
  6. ALBUTEROL. [Concomitant]
     Active Substance: ALBUTEROL
     Dosage: 2 PUFF, Q4HRS
  7. SPIRONOLACTONE. [Concomitant]
     Active Substance: SPIRONOLACTONE
     Dosage: 25 MG, QD
     Route: 048
  8. TUMS [Concomitant]
     Active Substance: CALCIUM CARBONATE
     Dosage: 1500 MG, Q1HOUR
  9. TYLENOL [Concomitant]
     Active Substance: ACETAMINOPHEN
     Dosage: 1000 MG, Q4H, PRN
     Route: 048
  10. MAGNESIUM OXIDE. [Concomitant]
     Active Substance: MAGNESIUM OXIDE
     Dosage: 400 MG, QD, PRN
     Route: 048
  11. SENNA [Concomitant]
     Active Substance: SENNA LEAF\SENNOSIDES\SENNOSIDES A AND B
     Dosage: 4 MG, Q1H PRN
     Route: 048
  12. UPTRAVI [Suspect]
     Active Substance: SELEXIPAG
     Dosage: 1000 MCG, BID
     Route: 048
     Dates: start: 20171010
  13. MORPHINE [Concomitant]
     Active Substance: MORPHINE
     Dosage: 2 MG, Q2H PRN
     Route: 048
  14. ATIVAN [Concomitant]
     Active Substance: LORAZEPAM
     Dosage: 0.5 MG, Q6HRS
     Route: 048
  15. ATIVAN [Concomitant]
     Active Substance: LORAZEPAM
     Dosage: 1 MG, TID
     Route: 048
  16. CALCIUM CARBONATE. [Concomitant]
     Active Substance: CALCIUM CARBONATE
     Dosage: 2 TABS, 750 MG, CHEWED, UNK
     Route: 048
  17. UPTRAVI [Suspect]
     Active Substance: SELEXIPAG
     Indication: PULMONARY HYPERTENSION
     Dosage: 600 MCG, BID
     Route: 048
     Dates: end: 20180702
  18. UPTRAVI [Suspect]
     Active Substance: SELEXIPAG
     Dosage: 200 MCG, / 800 MCG
     Route: 048
  19. FUROSEMIDE. [Concomitant]
     Active Substance: FUROSEMIDE
     Dosage: 20 MG, QD
     Route: 048
  20. WARFARIN [Concomitant]
     Active Substance: WARFARIN
     Dosage: 4.5 MG, QD
     Route: 048
  21. ATROPINE. [Concomitant]
     Active Substance: ATROPINE
     Dosage: 1% OPH SOLN, 2 GTT, UNDER TONGUE, Q2HRS, PRN
  22. ONDANSETRON [Concomitant]
     Active Substance: ONDANSETRON
     Dosage: 4 MG, Q8HRS, PRN
     Route: 048
  23. SILDENAFIL CITRATE. [Concomitant]
     Active Substance: SILDENAFIL CITRATE
     Dosage: 20 MG, Q8
     Route: 048
  24. LIDOCAINE. [Concomitant]
     Active Substance: LIDOCAINE
     Dosage: PRN, 1 PATCH, APPLY TO BACK DAILY, REMOVE PATCHES AFTER 12 HOURS
     Route: 061
  25. TRAZODONE [Concomitant]
     Active Substance: TRAZODONE HYDROCHLORIDE
     Dosage: 100 MG, QD AT BEDTIME
     Route: 048
  26. DOCUSATE [Concomitant]
     Active Substance: DOCUSATE
     Dosage: 100 MG, BID
     Route: 048

REACTIONS (24)
  - Tobacco abuse [Fatal]
  - Gallbladder disorder [Unknown]
  - Pericardial effusion [Unknown]
  - Dizziness [Unknown]
  - Pulmonary arterial hypertension [Fatal]
  - Chronic obstructive pulmonary disease [Fatal]
  - Right ventricular failure [Recovering/Resolving]
  - Feeling abnormal [Unknown]
  - Hypoxia [Fatal]
  - Abdominal pain [Unknown]
  - Condition aggravated [Fatal]
  - Cor pulmonale [Fatal]
  - Hydrothorax [Fatal]
  - Respiratory disorder [Unknown]
  - Hypophagia [Unknown]
  - Ascites [Fatal]
  - Left ventricular failure [Unknown]
  - Hepatic cirrhosis [Fatal]
  - Pulmonary embolism [Fatal]
  - Panic attack [Unknown]
  - Diarrhoea [Unknown]
  - Abdominal discomfort [Unknown]
  - Pain [Unknown]
  - Dyspnoea [Fatal]

NARRATIVE: CASE EVENT DATE: 20180602
